FAERS Safety Report 8709802 (Version 9)
Quarter: 2014Q2

REPORT INFORMATION
  Report Type: Report from Study
  Country: AU (occurrence: AU)
  Receive Date: 20120806
  Receipt Date: 20140520
  Transmission Date: 20141212
  Serious: Yes (Hospitalization)
  Sender: FDA-Public Use
  Company Number: AU-PFIZER INC-2012180845

PATIENT
  Age: 66 Year
  Sex: Male
  Weight: 78.2 kg

DRUGS (8)
  1. PF-03512676 [Suspect]
     Indication: NON-SMALL CELL LUNG CANCER
     Dosage: 5 UG, 1X/DAY
     Route: 030
     Dates: start: 20120605, end: 20120605
  2. FELDENE [Suspect]
     Indication: PAIN
     Dosage: 20 MG, PER DAY
     Route: 048
     Dates: end: 201112
  3. FELDENE [Suspect]
     Dosage: 20 MG, 1X/DAY
     Route: 048
     Dates: start: 20120514
  4. MAGE3-AS15-ASCI [Suspect]
     Indication: NON-SMALL CELL LUNG CANCER
     Dosage: 300MCG SINGLE DOSE
     Route: 030
     Dates: start: 20120605, end: 20120605
  5. LORATADINE [Concomitant]
     Indication: URTICARIA
     Dosage: 20 MG PER DAY
     Route: 048
     Dates: start: 20120613
  6. FEXOFENADINE HYDROCHLORIDE [Concomitant]
     Indication: URTICARIA
     Dosage: 180 MG PER DAY
     Route: 048
     Dates: start: 20120613
  7. FLUTICASONE FUROATE [Concomitant]
     Indication: UPPER-AIRWAY COUGH SYNDROME
     Dosage: 2 SPR PER DAY
     Route: 045
     Dates: start: 20120706
  8. FLUVAX [Concomitant]
     Dosage: UNK
     Route: 058
     Dates: start: 20120315, end: 20120315

REACTIONS (1)
  - Gastrooesophageal reflux disease [Recovered/Resolved]
